FAERS Safety Report 18320834 (Version 1)
Quarter: 2020Q3

REPORT INFORMATION
  Report Type: Report from Study
  Country: US (occurrence: US)
  Receive Date: 20200928
  Receipt Date: 20200928
  Transmission Date: 20201103
  Serious: Yes (Hospitalization, Other)
  Sender: FDA-Public Use
  Company Number: US-JNJFOC-A-US2019-193023

PATIENT
  Age: 68 Year
  Sex: Male

DRUGS (29)
  1. FAMOTIDINE. [Concomitant]
     Active Substance: FAMOTIDINE
  2. GABAPENTIN. [Concomitant]
     Active Substance: GABAPENTIN
  3. TYVASO [Concomitant]
     Active Substance: TREPROSTINIL
  4. ATORVASTATIN [Concomitant]
     Active Substance: ATORVASTATIN
  5. ALLOPURINOL. [Concomitant]
     Active Substance: ALLOPURINOL
  6. DULOXETINE. [Concomitant]
     Active Substance: DULOXETINE
  7. ELIQUIS [Concomitant]
     Active Substance: APIXABAN
  8. OPSUMIT [Suspect]
     Active Substance: MACITENTAN
     Dosage: 10 MG, QD
     Route: 048
     Dates: start: 20160812
  9. PANTOPRAZOLE [Concomitant]
     Active Substance: PANTOPRAZOLE
  10. HYDROCORTISONE. [Concomitant]
     Active Substance: HYDROCORTISONE
     Route: 061
  11. ATOVAQUONE. [Concomitant]
     Active Substance: ATOVAQUONE
  12. IRON [Suspect]
     Active Substance: IRON
     Indication: PRODUCT USED FOR UNKNOWN INDICATION
     Route: 065
  13. SILDENAFIL. [Concomitant]
     Active Substance: SILDENAFIL
  14. ALBUTEROL HFA [Concomitant]
     Active Substance: ALBUTEROL SULFATE
  15. TORSEMIDE. [Concomitant]
     Active Substance: TORSEMIDE
  16. ANUCORT?HC [Concomitant]
     Active Substance: HYDROCORTISONE ACETATE
  17. REMODULIN [Concomitant]
     Active Substance: TREPROSTINIL
  18. PREDNISONE. [Concomitant]
     Active Substance: PREDNISONE
  19. SPIRIVA [Concomitant]
     Active Substance: TIOTROPIUM BROMIDE MONOHYDRATE
  20. AMIODARONE [Concomitant]
     Active Substance: AMIODARONE
  21. APIXABAN [Concomitant]
     Active Substance: APIXABAN
  22. TRAZODONE [Concomitant]
     Active Substance: TRAZODONE HYDROCHLORIDE
  23. OXYCODONE [Concomitant]
     Active Substance: OXYCODONE
  24. ASPIRIN. [Concomitant]
     Active Substance: ASPIRIN
  25. VENTOLIN HFA [Concomitant]
     Active Substance: ALBUTEROL SULFATE
  26. OPSUMIT [Suspect]
     Active Substance: MACITENTAN
     Indication: PULMONARY ARTERIAL HYPERTENSION
     Dosage: 10 MG
     Route: 048
     Dates: start: 201606
  27. EPLERENONE. [Concomitant]
     Active Substance: EPLERENONE
  28. NARCAN [Concomitant]
     Active Substance: NALOXONE HYDROCHLORIDE
  29. NORCO [Concomitant]
     Active Substance: ACETAMINOPHEN\HYDROCODONE BITARTRATE

REACTIONS (36)
  - Cardiac failure [Unknown]
  - Pneumonia [Unknown]
  - Faeces discoloured [Unknown]
  - Abscess [Unknown]
  - Erythema [Unknown]
  - Fluid overload [Recovering/Resolving]
  - Upper respiratory tract infection [Unknown]
  - Pulmonary hypertension [Unknown]
  - Dyspnoea [Unknown]
  - Corneal abrasion [Unknown]
  - Dizziness [Unknown]
  - Myocardial ischaemia [Unknown]
  - Pyrexia [Unknown]
  - Haemorrhoids [Unknown]
  - Oropharyngeal pain [Unknown]
  - Acute kidney injury [Recovering/Resolving]
  - Chest pain [Unknown]
  - Oedema peripheral [Unknown]
  - Ocular hyperaemia [Unknown]
  - Pain in extremity [Recovering/Resolving]
  - Eye pain [Unknown]
  - Abdominal pain [Unknown]
  - Gastroenteritis [Unknown]
  - Arthropod bite [Unknown]
  - Nasal congestion [Unknown]
  - Acute respiratory failure [Recovering/Resolving]
  - Diarrhoea [Unknown]
  - Haemoglobin decreased [Unknown]
  - Chest discomfort [Unknown]
  - Productive cough [Unknown]
  - Right ventricular failure [Unknown]
  - Brain natriuretic peptide increased [Unknown]
  - Troponin increased [Unknown]
  - Swelling [Unknown]
  - Faeces discoloured [Unknown]
  - Pain [Unknown]

NARRATIVE: CASE EVENT DATE: 20190531
